FAERS Safety Report 8880447 (Version 1)
Quarter: 2012Q4

REPORT INFORMATION
  Report Type: 
  Country: US (occurrence: US)
  Receive Date: 20121101
  Receipt Date: 20121101
  Transmission Date: 20130627
  Serious: No
  Sender: FDA-Public Use
  Company Number: US-VERTEX PHARMACEUTICAL INC.-2012-023840

PATIENT
  Sex: Female
  Weight: 52.61 kg

DRUGS (3)
  1. VX-770 [Suspect]
     Indication: CYSTIC FIBROSIS
     Dosage: 150 mg/twice/week
     Dates: start: 20121005
  2. CYCLOSPORINE [Concomitant]
  3. KETOCONAZOLE [Concomitant]

REACTIONS (1)
  - Blood creatine increased [Not Recovered/Not Resolved]
